FAERS Safety Report 4352101-4 (Version None)
Quarter: 2004Q2

REPORT INFORMATION
  Report Type: 
  Country: None (occurrence: None)
  Receive Date: 20040409
  Receipt Date: 20040219
  Transmission Date: 20050107
  Serious: No
  Sender: FDA-Public Use
  Company Number: PHEH2004US02140

PATIENT
  Age: 2 Year
  Sex: Male

DRUGS (1)
  1. ELIDEL [Suspect]
     Indication: VITILIGO
     Dosage: BID,TOPICAL
     Route: 061

REACTIONS (2)
  - APPLICATION SITE PIGMENTATION CHANGES [None]
  - UNEXPECTED THERAPEUTIC DRUG EFFECT [None]
